FAERS Safety Report 25424015 (Version 2)
Quarter: 2025Q2

REPORT INFORMATION
  Report Type: Spontaneous
  Country: BE (occurrence: BE)
  Receive Date: 20250611
  Receipt Date: 20250616
  Transmission Date: 20250717
  Serious: Yes (Other)
  Sender: SANDOZ
  Company Number: BE-SANDOZ-SDZ2025BE040700

PATIENT
  Age: 23 Year
  Sex: Female

DRUGS (3)
  1. LISDEXAMFETAMINE [Suspect]
     Active Substance: LISDEXAMFETAMINE
     Indication: Product used for unknown indication
     Dosage: 20 MG, QD
     Route: 065
  2. METHYLPHENIDATE [Suspect]
     Active Substance: METHYLPHENIDATE
     Route: 065
  3. METHYLPHENIDATE [Suspect]
     Active Substance: METHYLPHENIDATE
     Indication: Attention deficit hyperactivity disorder
     Dosage: 63 MG, QD
     Route: 065

REACTIONS (6)
  - Toxicity to various agents [Unknown]
  - Logorrhoea [Unknown]
  - Insomnia [Unknown]
  - Restlessness [Unknown]
  - Nausea [Unknown]
  - Vision blurred [Unknown]
